FAERS Safety Report 15533584 (Version 2)
Quarter: 2018Q4

REPORT INFORMATION
  Report Type: Spontaneous
  Country: US (occurrence: US)
  Receive Date: 20181019
  Receipt Date: 20181207
  Transmission Date: 20190205
  Serious: No
  Sender: FDA-Public Use
  Company Number: US-SA-2018SA255756

PATIENT
  Age: 66 Year
  Sex: Female
  Weight: 142 kg

DRUGS (1)
  1. ACT ANTICAVITY FLUORIDE CINNAMON [Suspect]
     Active Substance: SODIUM FLUORIDE
     Indication: TONGUE DRY
     Dosage: UNK UNK, UNK
     Route: 065

REACTIONS (2)
  - Tongue dry [Not Recovered/Not Resolved]
  - Skin exfoliation [Not Recovered/Not Resolved]
